FAERS Safety Report 5167172-5 (Version None)
Quarter: 2006Q4

REPORT INFORMATION
  Report Type: 
  Country: None (occurrence: None)
  Receive Date: 20061130
  Receipt Date: 20061124
  Transmission Date: 20070319
  Serious: Yes (Hospitalization, Other)
  Sender: FDA-Public Use
  Company Number: FRWYE642324NOV06

PATIENT
  Age: 31 Year
  Sex: Female

DRUGS (7)
  1. RHINADVIL (IBUPROFEN/PSEUDOEPHEDRINE HYDROCHLORIDE, TABLET) [Suspect]
     Indication: GASTROENTERITIS
     Dosage: 4 TABLETS DAILY
     Route: 048
     Dates: start: 20061024, end: 20061102
  2. DAFALGAN (PARACETAMOL, , ) [Suspect]
     Indication: GASTROENTERITIS
     Route: 048
     Dates: start: 20061024, end: 20061102
  3. MOTILIUM [Suspect]
     Indication: GASTROENTERITIS
     Dosage: 6 DOSES DAILY
     Route: 048
     Dates: start: 20061024, end: 20061102
  4. NEO-CODION CAPS (CODEINE CAMSILATE/ETHYLMORPHINE CAMSILATE/SULFOGAIACO [Suspect]
     Indication: COUGH
     Dosage: 3 DOSES DAILY
     Route: 048
     Dates: start: 20061024, end: 20061102
  5. ETHINYL ESTRADIOL AND LEVONORGESTREL [Concomitant]
  6. SPASFON (PHLOROGLUCINOL/TRIMETHYLPHLOROGLUCINOL) [Concomitant]
  7. TRAMADOL HCL [Concomitant]

REACTIONS (5)
  - HEPATIC FAILURE [None]
  - HYPERAMYLASAEMIA [None]
  - LEUKOCYTOSIS [None]
  - RENAL FAILURE ACUTE [None]
  - SOMNOLENCE [None]
